FAERS Safety Report 7823746-1 (Version None)
Quarter: 2011Q4

REPORT INFORMATION
  Report Type: 
  Country: None (occurrence: None)
  Receive Date: 20111019
  Receipt Date: 20111017
  Transmission Date: 20120403
  Serious: No
  Sender: FDA-Public Use
  Company Number: US-PFIZER INC-2011249255

PATIENT
  Sex: Female
  Weight: 65.76 kg

DRUGS (1)
  1. IBUPROFEN (ADVIL) [Suspect]
     Indication: DYSMENORRHOEA
     Dosage: 2 EVERY FOUR TO FIVE HOURS FOR PERIOD CRAMPS AS NEEDED
     Dates: start: 20040101

REACTIONS (1)
  - VOMITING [None]
